FAERS Safety Report 25522391 (Version 1)
Quarter: 2025Q3

REPORT INFORMATION
  Report Type: Spontaneous
  Country: US (occurrence: US)
  Receive Date: 20250707
  Receipt Date: 20250707
  Transmission Date: 20251020
  Serious: No
  Sender: BIOLINERX
  Company Number: US-MIMS-BIOLMC-864

PATIENT

DRUGS (2)
  1. APHEXDA [Suspect]
     Active Substance: MOTIXAFORTIDE ACETATE
     Indication: Haematopoietic stem cell mobilisation
     Route: 065
     Dates: start: 20250217, end: 20250219
  2. APHEXDA [Suspect]
     Active Substance: MOTIXAFORTIDE ACETATE
     Indication: Plasma cell myeloma

REACTIONS (3)
  - Injection site necrosis [Recovering/Resolving]
  - Injection site ulcer [Recovering/Resolving]
  - Ecthyma [Recovering/Resolving]

NARRATIVE: CASE EVENT DATE: 20250217
